FAERS Safety Report 23825760 (Version 1)
Quarter: 2024Q2

REPORT INFORMATION
  Report Type: Spontaneous
  Country: US (occurrence: None)
  Receive Date: 20240506
  Receipt Date: 20240506
  Transmission Date: 20240715
  Serious: Yes (Hospitalization)
  Sender: FDA-Public Use
  Company Number: None

PATIENT
  Sex: Male

DRUGS (11)
  1. MYCOPHENOLIC ACID [Suspect]
     Active Substance: MYCOPHENOLIC ACID
     Indication: Renal transplant
     Dosage: FREQ: TAKE 3 TABLETS BY MOUTH TWICE DAILY. MANUFACTURER MAY CHANGE EACH FILL DUE TO STOCK; TABLET CO
     Route: 048
     Dates: start: 20200923
  2. CALCITRIOL [Concomitant]
  3. DAPSONE [Concomitant]
     Active Substance: DAPSONE
  4. ESCITALOPRAM [Concomitant]
     Active Substance: ESCITALOPRAM OXALATE
  5. ESCITALOPRAM [Concomitant]
     Active Substance: ESCITALOPRAM OXALATE
  6. LEVOTHYROXINE [Concomitant]
     Active Substance: LEVOTHYROXINE\LEVOTHYROXINE SODIUM
  7. METOPROLOL TARTRATE [Concomitant]
     Active Substance: METOPROLOL TARTRATE
  8. NOVOLOG [Concomitant]
     Active Substance: INSULIN ASPART
  9. SIMVASTATIN [Concomitant]
     Active Substance: SIMVASTATIN
  10. TELMISA/HCTZ [Concomitant]
  11. VALGANCICLOV [Concomitant]

REACTIONS (1)
  - Pneumonia [None]
